FAERS Safety Report 11888490 (Version 1)
Quarter: 2016Q1

REPORT INFORMATION
  Report Type: Other
  Country: GB (occurrence: GB)
  Receive Date: 20160105
  Receipt Date: 20160105
  Transmission Date: 20160526
  Serious: Yes (Other)
  Sender: FDA-Public Use
  Company Number: GB-MYLANLABS-2015M1046453

PATIENT

DRUGS (7)
  1. TWINRIX [Concomitant]
     Active Substance: HEPATITIS A VIRUS STRAIN HM175 ANTIGEN (FORMALDEHYDE INACTIVATED)\HEPATITIS B VIRUS SUBTYPE ADW2 HBSAG SURFACE PROTEIN ANTIGEN
     Dosage: UNK (USE AS DIRECTED)
     Dates: start: 20151211
  2. DOXAZOSIN [Concomitant]
     Active Substance: DOXAZOSIN\DOXAZOSIN MESYLATE
     Dosage: 1 DF, QD
     Dates: start: 20150703
  3. ROSUVASTATIN [Concomitant]
     Active Substance: ROSUVASTATIN
     Dosage: 1 DF, QD
     Dates: start: 20150703, end: 20151102
  4. ATORVASTATIN MYLAN [Suspect]
     Active Substance: ATORVASTATIN
     Dosage: UNK
     Dates: start: 20151102
  5. LISINOPRIL. [Concomitant]
     Active Substance: LISINOPRIL
     Dosage: 1 DF, QD
     Dates: start: 20150702
  6. WARFARIN SODIUM. [Concomitant]
     Active Substance: WARFARIN SODIUM
     Dosage: 1 DF, UNK (AS DIRECTED)
     Dates: start: 20150702
  7. ZEMTARD [Concomitant]
     Dosage: 1 DF, QD
     Dates: start: 20150702

REACTIONS (2)
  - Pain [Recovered/Resolved]
  - Dyspepsia [Unknown]

NARRATIVE: CASE EVENT DATE: 20151211
